FAERS Safety Report 4387945-6 (Version None)
Quarter: 2004Q2

REPORT INFORMATION
  Report Type: 
  Country: None (occurrence: None)
  Receive Date: 20040630
  Receipt Date: 20040624
  Transmission Date: 20050107
  Serious: Yes (Other)
  Sender: FDA-Public Use
  Company Number: ES-MERCK-0406ESP00047

PATIENT
  Age: 8 Year
  Sex: Female
  Weight: 26 kg

DRUGS (2)
  1. SINGULAIR [Suspect]
     Indication: ASTHMA
     Route: 048
     Dates: start: 20040301, end: 20040428
  2. SINGULAIR [Suspect]
     Route: 065
     Dates: start: 20030101, end: 20030101

REACTIONS (2)
  - HYPERKINESIA [None]
  - NEUROSIS [None]
